FAERS Safety Report 4816050-7 (Version None)
Quarter: 2005Q4

REPORT INFORMATION
  Report Type: 
  Country: None (occurrence: None)
  Receive Date: 20051026
  Receipt Date: 20051012
  Transmission Date: 20060501
  Serious: Yes (Hospitalization)
  Sender: FDA-Public Use
  Company Number: EWC050945885

PATIENT
  Age: 40 Year
  Sex: Male
  Weight: 81 kg

DRUGS (3)
  1. CIALIS [Suspect]
     Indication: ERECTILE DYSFUNCTION
     Dosage: 20 MG
  2. HUMALOG [Concomitant]
  3. ASPIRIN [Concomitant]

REACTIONS (5)
  - ANGINA UNSTABLE [None]
  - BACK PAIN [None]
  - DEPRESSION [None]
  - FEELING ABNORMAL [None]
  - SHOULDER PAIN [None]
